FAERS Safety Report 8250180-5 (Version None)
Quarter: 2012Q2

REPORT INFORMATION
  Report Type: 
  Country: None (occurrence: None)
  Receive Date: 20120402
  Receipt Date: 20120327
  Transmission Date: 20120825
  Serious: Yes (Hospitalization)
  Sender: FDA-Public Use
  Company Number: SE-PFIZER INC-2012077895

PATIENT
  Age: 52 Year
  Sex: Female
  Weight: 162 kg

DRUGS (5)
  1. HYDROCORTISONE [Concomitant]
     Indication: BLOOD CORTISOL DECREASED
     Dosage: 10 MG, 2X/DAY
     Dates: start: 20071205
  2. HYDROCORTISONE [Concomitant]
     Dosage: 10 MG, 3X/DAY
     Dates: start: 20090226
  3. LEVOTHYROXINE [Concomitant]
     Indication: HYPOTHYROIDISM
     Dosage: 50 UG, 1X/DAY
     Dates: start: 20081201
  4. SOMATROPIN [Suspect]
     Indication: GROWTH HORMONE DEFICIENCY
     Dosage: UNK
     Dates: start: 19960403, end: 20070629
  5. WARFARIN SODIUM [Concomitant]
     Indication: THROMBOSIS
     Dosage: 2.5 MG, UNK
     Dates: start: 20090330

REACTIONS (1)
  - RECTAL CANCER [None]
